FAERS Safety Report 19742880 (Version 2)
Quarter: 2022Q2

REPORT INFORMATION
  Report Type: Spontaneous
  Country: IL (occurrence: IL)
  Receive Date: 20210824
  Receipt Date: 20220623
  Transmission Date: 20220721
  Serious: Yes (Other)
  Sender: FDA-Public Use
  Company Number: IL-BAUSCH-BL-2021-027825

PATIENT
  Age: 12 Month
  Sex: Female

DRUGS (13)
  1. HYDROCORTISONE [Suspect]
     Active Substance: HYDROCORTISONE
     Indication: Shock
     Dosage: STRESS DOSE
     Route: 065
  2. HYDROCORTISONE [Suspect]
     Active Substance: HYDROCORTISONE
     Dosage: MAINTENANCE DOSE
     Route: 065
  3. FUROSEMIDE [Concomitant]
     Active Substance: FUROSEMIDE
     Indication: Product used for unknown indication
  4. ASPIRIN [Concomitant]
     Active Substance: ASPIRIN
     Indication: Product used for unknown indication
  5. CAPTOPRIL [Concomitant]
     Active Substance: CAPTOPRIL
     Indication: Product used for unknown indication
  6. AMOXICILLIN [Concomitant]
     Active Substance: AMOXICILLIN
     Indication: Antibiotic prophylaxis
  7. ADRENALIN [Concomitant]
     Active Substance: EPINEPHRINE
     Indication: Septic shock
     Dosage: DRIP
  8. CEFTRIAXONE [Concomitant]
     Active Substance: CEFTRIAXONE
     Indication: Septic shock
  9. CEFTRIAXONE [Concomitant]
     Active Substance: CEFTRIAXONE
     Indication: Multiple organ dysfunction syndrome
  10. CLINDAMYCIN [Concomitant]
     Active Substance: CLINDAMYCIN
     Indication: Septic shock
  11. CLINDAMYCIN [Concomitant]
     Active Substance: CLINDAMYCIN
     Indication: Multiple organ dysfunction syndrome
  12. AMIKACIN [Concomitant]
     Active Substance: AMIKACIN
     Indication: Septic shock
  13. AMIKACIN [Concomitant]
     Active Substance: AMIKACIN
     Indication: Multiple organ dysfunction syndrome

REACTIONS (1)
  - Disseminated varicella zoster vaccine virus infection [Recovered/Resolved]
